FAERS Safety Report 19088163 (Version 2)
Quarter: 2021Q2

REPORT INFORMATION
  Report Type: Spontaneous
  Country: MA (occurrence: MA)
  Receive Date: 20210402
  Receipt Date: 20210420
  Transmission Date: 20210717
  Serious: Yes (Other)
  Sender: FDA-Public Use
  Company Number: MA-PFIZER INC-2021329025

PATIENT
  Age: 23 Year
  Sex: Female

DRUGS (1)
  1. PIROXICAM. [Suspect]
     Active Substance: PIROXICAM
     Indication: DYSMENORRHOEA
     Dosage: UNK

REACTIONS (3)
  - Dermatitis bullous [Recovered/Resolved with Sequelae]
  - Fixed eruption [Recovered/Resolved with Sequelae]
  - Pigmentation disorder [Unknown]
